FAERS Safety Report 5275464-4 (Version None)
Quarter: 2007Q1

REPORT INFORMATION
  Report Type: 
  Country: None (occurrence: None)
  Receive Date: 20070322
  Receipt Date: 20070322
  Transmission Date: 20070707
  Serious: Yes (Hospitalization)
  Sender: FDA-Public Use
  Company Number: None

PATIENT
  Age: 58 Year
  Sex: Male

DRUGS (9)
  1. INTERFERON ALFA 2 BETA [Suspect]
     Indication: MALIGNANT MELANOMA
     Dosage: 40 MILLION UNITS ONCE SQ
     Route: 058
     Dates: start: 20070212
  2. ACETAMINOPHEN [Concomitant]
  3. ACETAMINOPHEN AND HYDROCODONE BITARTRATE [Concomitant]
  4. DIVALPROEX SODIUM [Concomitant]
  5. GABAPENTIN [Concomitant]
  6. METFORMIN HCL [Concomitant]
  7. MULTIVITAMIN/MINERALS THERAPEUT [Concomitant]
  8. SIMVASTATIN [Concomitant]
  9. SODIUM CHLORIDE 0.65% SOLN NASAL SPRAY [Concomitant]

REACTIONS (7)
  - ABASIA [None]
  - CHEST PAIN [None]
  - MUSCULOSKELETAL PAIN [None]
  - MYOSITIS [None]
  - PYREXIA [None]
  - UNEVALUABLE EVENT [None]
  - URINARY INCONTINENCE [None]
